FAERS Safety Report 15136173 (Version 1)
Quarter: 2018Q3

REPORT INFORMATION
  Report Type: Spontaneous
  Country: US (occurrence: US)
  Receive Date: 20180617
  Receipt Date: 20180617
  Transmission Date: 20181010
  Serious: Yes (Other)
  Sender: FDA-Public Use
  Company Number: None

PATIENT
  Age: 25 Year
  Sex: Female
  Weight: 69.75 kg

DRUGS (4)
  1. NEXPLANON [Suspect]
     Active Substance: ETONOGESTREL
     Indication: CONTRACEPTION
     Dosage: ?          QUANTITY:1 IMPLANT;OTHER FREQUENCY:EVERY 3 YEARS;?
     Route: 058
  2. SYNTHROID [Concomitant]
     Active Substance: LEVOTHYROXINE SODIUM
  3. IBUPROFEN. [Concomitant]
     Active Substance: IBUPROFEN
  4. PROMETHAZINE [Concomitant]
     Active Substance: PROMETHAZINE\PROMETHAZINE HYDROCHLORIDE

REACTIONS (7)
  - Adjustment disorder with depressed mood [None]
  - Weight increased [None]
  - Abdominal pain [None]
  - Vaginal haemorrhage [None]
  - Blood triglycerides increased [None]
  - Thyroid disorder [None]
  - Mood swings [None]

NARRATIVE: CASE EVENT DATE: 20180314
